FAERS Safety Report 5299153-5 (Version None)
Quarter: 2007Q2

REPORT INFORMATION
  Report Type: 
  Country: None (occurrence: None)
  Receive Date: 20070417
  Receipt Date: 20070412
  Transmission Date: 20071010
  Serious: Yes (Hospitalization)
  Sender: FDA-Public Use
  Company Number: NL-BAYER-200712155GDS

PATIENT
  Age: 56 Year
  Sex: Female

DRUGS (1)
  1. NEXAVAR [Suspect]
     Indication: METASTATIC RENAL CELL CARCINOMA
     Route: 065
     Dates: start: 20070313, end: 20070408

REACTIONS (7)
  - DYSPNOEA [None]
  - ERYTHEMA [None]
  - EYE SWELLING [None]
  - FLUID RETENTION [None]
  - GLOSSODYNIA [None]
  - PRURITUS [None]
  - RASH [None]
